FAERS Safety Report 21434802 (Version 6)
Quarter: 2023Q1

REPORT INFORMATION
  Report Type: Report from Study
  Country: US (occurrence: US)
  Receive Date: 20221010
  Receipt Date: 20230202
  Transmission Date: 20230418
  Serious: Yes (Other)
  Sender: FDA-Public Use
  Company Number: US-UCBSA-2022058813

PATIENT
  Age: 15 Year
  Sex: Male
  Weight: 43.537 kg

DRUGS (6)
  1. FINTEPLA [Suspect]
     Active Substance: FENFLURAMINE
     Indication: Product used for unknown indication
     Dosage: 4.5 MILLILITER, 2X/DAY (BID)
  2. FINTEPLA [Suspect]
     Active Substance: FENFLURAMINE
     Dosage: 6 MILLILITER, 2X/DAY (BID)
     Dates: start: 2022
  3. FINTEPLA [Suspect]
     Active Substance: FENFLURAMINE
     Dosage: 6 MILLILITER, 2X/DAY (BID)
  4. VALPROIC ACID [Concomitant]
     Active Substance: VALPROIC ACID
     Indication: Product used for unknown indication
     Dosage: 2.5ML AND 5ML
  5. VALPROIC ACID [Concomitant]
     Active Substance: VALPROIC ACID
     Dosage: 5 TO 10ML
  6. KLONOPIN [Concomitant]
     Active Substance: CLONAZEPAM
     Indication: Product used for unknown indication
     Dosage: UNK

REACTIONS (9)
  - Seizure [Not Recovered/Not Resolved]
  - Change in seizure presentation [Not Recovered/Not Resolved]
  - Focal dyscognitive seizures [Recovered/Resolved]
  - Generalised tonic-clonic seizure [Recovered/Resolved]
  - Myoclonic epilepsy [Recovered/Resolved]
  - Seizure cluster [Unknown]
  - Crying [Unknown]
  - Weight increased [Not Recovered/Not Resolved]
  - Somnolence [Not Recovered/Not Resolved]

NARRATIVE: CASE EVENT DATE: 20220929
